FAERS Safety Report 9373766 (Version 3)
Quarter: 2013Q4

REPORT INFORMATION
  Report Type: Spontaneous
  Country: DE (occurrence: DE)
  Receive Date: 20130628
  Receipt Date: 20131017
  Transmission Date: 20140711
  Serious: Yes (Life-Threatening, Hospitalization, Other)
  Sender: FDA-Public Use
  Company Number: DE-AMGEN-DEUSP2013045301

PATIENT
  Age: 61 Year
  Sex: Male

DRUGS (10)
  1. ENBREL [Suspect]
     Indication: PSORIATIC ARTHROPATHY
     Dosage: 25 MG, 2X/WEEK
     Route: 058
     Dates: start: 200910
  2. ENBREL [Suspect]
     Indication: PSORIASIS
     Dosage: EITHER 25 MG TWICE WEEKLY OR 50 MG WEEKLY
     Route: 058
     Dates: end: 201305
  3. ASS [Concomitant]
     Dosage: UNK, 1X/DAY
  4. FURORESE                           /00032601/ [Concomitant]
     Dosage: UNK, 1X/DAY
  5. SPIRO [Concomitant]
     Dosage: 0.5 DF, 1X/DAY
  6. RAMIPRIL [Concomitant]
     Dosage: 0.25 DF, 1X/DAY
  7. LOCOL                              /01224502/ [Concomitant]
     Dosage: UNK, 1X/DAY
  8. BEROTEC [Concomitant]
     Dosage: 2 DF, 3X/DAY
  9. SEREVENT [Concomitant]
     Dosage: 1 DF, 2X/DAY
  10. ALLOPURINOL [Concomitant]
     Dosage: UNK, 1X/DAY

REACTIONS (1)
  - Cholangiocarcinoma [Unknown]
